FAERS Safety Report 11072153 (Version 1)
Quarter: 2015Q2

REPORT INFORMATION
  Report Type: Spontaneous
  Country: IL (occurrence: None)
  Receive Date: 20150427
  Receipt Date: 20150427
  Transmission Date: 20150821
  Serious: Yes (Disabling)
  Sender: FDA-Public Use
  Company Number: None

PATIENT
  Age: 74 Year
  Sex: Female
  Weight: 49.9 kg

DRUGS (6)
  1. VIT. C [Concomitant]
  2. JARRODOPHILUS [Concomitant]
  3. CALCIUM MAGNESIUM SUPPLEMENT [Concomitant]
     Active Substance: CALCIUM\MAGNESIUM
  4. ADAFERIN CREAM 0.1% LABORATOIRES GALDERMA, FRANCE [Suspect]
     Active Substance: ADAPALENE
     Indication: SKIN DISORDER
     Dosage: APPLY THIN LAYER BEFORE BED
     Route: 061
     Dates: start: 20120315, end: 20141006
  5. VIT. D, FOLIC ACID, VIT. B - COMPLEX [Concomitant]
     Active Substance: FOLIC ACID\VITAMINS
  6. ATORVASTATIN (AS CALCIUM) [Concomitant]

REACTIONS (6)
  - Rash [None]
  - Erythema [None]
  - Incorrect drug administration duration [None]
  - Photosensitivity reaction [None]
  - Dermatitis [None]
  - Drug ineffective [None]
